FAERS Safety Report 4858764-9 (Version None)
Quarter: 2005Q4

REPORT INFORMATION
  Report Type: 
  Country: None (occurrence: None)
  Receive Date: 20051219
  Receipt Date: 20051027
  Transmission Date: 20060501
  Serious: No
  Sender: FDA-Public Use
  Company Number: US-GLAXOSMITHKLINE-A0579849A

PATIENT
  Age: 50 Year
  Sex: Female

DRUGS (2)
  1. NICODERM CQ [Suspect]
     Dates: start: 20050918
  2. NICODERM CQ [Suspect]

REACTIONS (8)
  - CRYING [None]
  - DYSGEUSIA [None]
  - ELEVATED MOOD [None]
  - EUPHORIC MOOD [None]
  - INSOMNIA [None]
  - PRURITUS [None]
  - RASH [None]
  - SWOLLEN TONGUE [None]
